FAERS Safety Report 5366667-9 (Version None)
Quarter: 2007Q2

REPORT INFORMATION
  Report Type: 
  Country: None (occurrence: None)
  Receive Date: 20070619
  Receipt Date: 20070607
  Transmission Date: 20071010
  Serious: Yes (Hospitalization)
  Sender: FDA-Public Use
  Company Number: 234694K07USA

PATIENT
  Age: 74 Year
  Sex: Female

DRUGS (3)
  1. REBIF [Suspect]
     Indication: MULTIPLE SCLEROSIS
     Dosage: 44 MCG, 3 IN 1 WEEKS,  SUBCUTANEOUS
     Route: 058
     Dates: start: 20070307
  2. HYDROCODONE (HYDROCODONE) [Concomitant]
  3. TYLENOL (COTYLENOL) [Concomitant]

REACTIONS (1)
  - ARTHROPATHY [None]
